FAERS Safety Report 12455685 (Version 2)
Quarter: 2016Q3

REPORT INFORMATION
  Report Type: Spontaneous
  Country: IT (occurrence: IT)
  Receive Date: 20160610
  Receipt Date: 20160707
  Transmission Date: 20161109
  Serious: Yes (Other)
  Sender: FDA-Public Use
  Company Number: IT-TEVA-663855ACC

PATIENT
  Age: 42 Year
  Sex: Female
  Weight: 70 kg

DRUGS (5)
  1. PACLITAXEL MYLAN GENERICS - MYLAN S.P.A. [Suspect]
     Active Substance: PACLITAXEL
     Indication: OVARIAN CANCER
     Dosage: 200 MG CYCLICAL
     Route: 042
     Dates: start: 20141029, end: 20150211
  2. CARBOPLATINO TEVA - TEVA PHARMA B.V. [Suspect]
     Active Substance: CARBOPLATIN
     Indication: OVARIAN CANCER
     Dosage: 600 MG CYCLICAL
     Route: 042
     Dates: start: 20141029, end: 20150211
  3. BEVACIZUMAB [Suspect]
     Active Substance: BEVACIZUMAB
     Indication: OVARIAN CANCER
     Dosage: 1035 MG CYCLICAL
     Route: 042
     Dates: start: 20141019, end: 20150211
  4. DECADRON ISTITUTO BIOCHIMICO NAZIONALE SAVIO S.R.L. [Concomitant]
     Indication: INFLAMMATION
     Dosage: 20 MG
     Route: 042
     Dates: start: 20141029, end: 20150211
  5. ZOFRAN GLAXOSMITHKLINE S.P.A. [Concomitant]
     Indication: PROPHYLAXIS OF NAUSEA AND VOMITING
     Dosage: 8 MG
     Route: 042
     Dates: start: 20141029, end: 20150211

REACTIONS (3)
  - Neutropenia [Recovered/Resolved]
  - Anaemia [Recovered/Resolved]
  - Pancytopenia [Recovered/Resolved]

NARRATIVE: CASE EVENT DATE: 20150211
